FAERS Safety Report 12182666 (Version 3)
Quarter: 2016Q2

REPORT INFORMATION
  Report Type: Report from Study
  Country: CA (occurrence: CA)
  Receive Date: 20160316
  Receipt Date: 20160607
  Transmission Date: 20160815
  Serious: Yes (Other)
  Sender: FDA-Public Use
  Company Number: CA-ROCHE-1668566

PATIENT
  Age: 73 Year
  Sex: Male

DRUGS (6)
  1. ESBRIET [Suspect]
     Active Substance: PIRFENIDONE
     Route: 048
  2. ESBRIET [Suspect]
     Active Substance: PIRFENIDONE
     Indication: IDIOPATHIC PULMONARY FIBROSIS
     Route: 048
     Dates: start: 20130612, end: 201511
  3. ESBRIET [Suspect]
     Active Substance: PIRFENIDONE
     Route: 048
     Dates: start: 20131020
  4. ESBRIET [Suspect]
     Active Substance: PIRFENIDONE
     Route: 048
     Dates: start: 201512
  5. PREDNISONE. [Concomitant]
     Active Substance: PREDNISONE
     Route: 065
  6. OXYGEN. [Concomitant]
     Active Substance: OXYGEN
     Dosage: 2 TO 3 LITRES 24/7
     Route: 065

REACTIONS (11)
  - Carbon monoxide diffusing capacity decreased [Unknown]
  - Asthenia [Unknown]
  - Pulmonary hypertension [Unknown]
  - Fatigue [Not Recovered/Not Resolved]
  - Platelet count decreased [Unknown]
  - Cardiomegaly [Unknown]
  - Hiatus hernia [Unknown]
  - Decreased appetite [Recovering/Resolving]
  - Weight increased [Unknown]
  - Cholelithiasis [Unknown]
  - Forced vital capacity decreased [Unknown]

NARRATIVE: CASE EVENT DATE: 201509
